FAERS Safety Report 7237855-1 (Version None)
Quarter: 2011Q1

REPORT INFORMATION
  Report Type: 
  Country: None (occurrence: None)
  Receive Date: 20110113
  Receipt Date: 20101116
  Transmission Date: 20110831
  Serious: Yes (Congenital Anomaly)
  Sender: FDA-Public Use
  Company Number: AUR-APL-2010-02813

PATIENT

DRUGS (1)
  1. TOPIRAMATE [Suspect]
     Dosage: -TRANSPLACENTAL
     Route: 064

REACTIONS (2)
  - CLEFT LIP AND PALATE [None]
  - MATERNAL DRUGS AFFECTING FOETUS [None]
